FAERS Safety Report 20790150 (Version 1)
Quarter: 2022Q2

REPORT INFORMATION
  Report Type: Spontaneous
  Country: US (occurrence: None)
  Receive Date: 20220505
  Receipt Date: 20220505
  Transmission Date: 20220721
  Serious: Yes (Other)
  Sender: FDA-Public Use
  Company Number: US-Fresenius Kabi-FK202205053

PATIENT
  Age: 21 Year
  Sex: Female
  Weight: 68 kg

DRUGS (12)
  1. PROPOFOL [Suspect]
     Active Substance: PROPOFOL
     Indication: Sedative therapy
     Dosage: 125-150 UG/KG/MIN; ; TOTAL DOSE OF 990MG;?FORM OF ADMIN REPORTED AS INFUSION
     Route: 042
  2. ACETAMINOPHEN [Concomitant]
     Active Substance: ACETAMINOPHEN
     Indication: Preoperative care
     Dosage: UNK
     Route: 065
  3. CELECOXIB [Concomitant]
     Active Substance: CELECOXIB
     Indication: Preoperative care
     Route: 065
  4. MIDAZOLAM [Concomitant]
     Active Substance: MIDAZOLAM
     Indication: Sedation
     Route: 042
  5. BUPIVACAINE [Concomitant]
     Active Substance: BUPIVACAINE
     Indication: Preoperative care
     Route: 065
  6. DEXAMETHASONE [Concomitant]
     Active Substance: DEXAMETHASONE
     Indication: Intraoperative care
     Dosage: UNK
     Route: 065
  7. CEFAZOLIN [Concomitant]
     Active Substance: CEFAZOLIN
     Indication: Intraoperative care
     Dosage: UNK
     Route: 065
  8. TRANEXAMIC ACID [Concomitant]
     Active Substance: TRANEXAMIC ACID
     Indication: Intraoperative care
     Dosage: UNK
     Route: 065
  9. PHENYLEPHRINE [Concomitant]
     Active Substance: PHENYLEPHRINE HYDROCHLORIDE
     Indication: Intraoperative care
     Dosage: UNK
     Route: 065
  10. ROPIVACAINE [Concomitant]
     Active Substance: ROPIVACAINE
     Indication: Nerve block
     Route: 065
  11. FENTANYL [Concomitant]
     Active Substance: FENTANYL
     Indication: Sedation
     Route: 042
  12. KETAMINE [Concomitant]
     Active Substance: KETAMINE
     Indication: Sedation
     Route: 042

REACTIONS (3)
  - Anaesthetic complication neurological [Recovered/Resolved]
  - Blood creatine phosphokinase increased [Recovered/Resolved]
  - Peripheral paralysis [Recovered/Resolved]
